FAERS Safety Report 8665584 (Version 2)
Quarter: 2012Q4

REPORT INFORMATION
  Report Type: Report from Study
  Country: US (occurrence: US)
  Receive Date: 20120716
  Receipt Date: 20121204
  Transmission Date: 20130627
  Serious: Yes (Death, Hospitalization)
  Sender: FDA-Public Use
  Company Number: US-ASTELLAS-2012US006116

PATIENT
  Age: 73 Year
  Sex: Male

DRUGS (1)
  1. ERLOTINIB TABLET [Suspect]
     Indication: NON-SMALL CELL LUNG CANCER
     Dosage: 150 mg, UID/QD
     Route: 048
     Dates: start: 20120518, end: 20120618

REACTIONS (3)
  - Pulmonary embolism [Unknown]
  - Respiratory failure [Fatal]
  - Dyspnoea [Fatal]
